FAERS Safety Report 7907667-1 (Version None)
Quarter: 2011Q4

REPORT INFORMATION
  Report Type: 
  Country: None (occurrence: None)
  Receive Date: 20111110
  Receipt Date: 20111103
  Transmission Date: 20120403
  Serious: Yes (Other)
  Sender: FDA-Public Use
  Company Number: GB-TEVA-308159ISR

PATIENT
  Age: 9 Year
  Sex: Male
  Weight: 30.5 kg

DRUGS (6)
  1. MAGNESIUM GLYCEROPHOSPHATE [Concomitant]
  2. POTASSIUM CHLORIDE [Concomitant]
  3. NIFEDIPINE [Concomitant]
  4. ONDANSETRON [Concomitant]
  5. VINCRISTINE [Concomitant]
  6. CARBOPLATIN [Suspect]
     Indication: BRAIN NEOPLASM MALIGNANT
     Route: 042
     Dates: start: 20110105, end: 20111026

REACTIONS (5)
  - RASH [None]
  - LIP SWELLING [None]
  - URTICARIA [None]
  - COUGH [None]
  - PRURITUS [None]
